FAERS Safety Report 4308505-9 (Version None)
Quarter: 2004Q1

REPORT INFORMATION
  Report Type: 
  Country: None (occurrence: None)
  Receive Date: 20040301
  Receipt Date: 20040218
  Transmission Date: 20041129
  Serious: Yes (Hospitalization, Other)
  Sender: FDA-Public Use
  Company Number: PHBS2004BE02436

PATIENT
  Age: 83 Year
  Sex: Female

DRUGS (4)
  1. SANDOSTATIN [Suspect]
     Indication: INTESTINAL DILATATION
     Dosage: .1 MG, TID
     Route: 058
     Dates: start: 20030701, end: 20040218
  2. SANDOSTATIN [Suspect]
     Dosage: .5 MG, TID
     Route: 058
     Dates: start: 20040219
  3. SINTROM [Suspect]
     Indication: THROMBOSIS PROPHYLAXIS
  4. HEPARIN [Suspect]

REACTIONS (10)
  - ASCITES [None]
  - BILE DUCT STONE [None]
  - BLOOD AMYLASE INCREASED [None]
  - BLOOD BILIRUBIN INCREASED [None]
  - CARDIAC FAILURE [None]
  - GENERALISED OEDEMA [None]
  - LIPASE INCREASED [None]
  - PANCREATITIS [None]
  - POST PROCEDURAL HAEMORRHAGE [None]
  - THROMBOSIS [None]
